FAERS Safety Report 20722161 (Version 3)
Quarter: 2022Q4

REPORT INFORMATION
  Report Type: Spontaneous
  Country: US (occurrence: US)
  Receive Date: 20220418
  Receipt Date: 20221011
  Transmission Date: 20230112
  Serious: No
  Sender: FDA-Public Use
  Company Number: US-PFIZER INC-2018078845

PATIENT
  Age: 69 Year
  Sex: Female

DRUGS (1)
  1. PREMPRO [Suspect]
     Active Substance: ESTROGENS, CONJUGATED\MEDROXYPROGESTERONE ACETATE
     Indication: Hot flush
     Dosage: UNK

REACTIONS (2)
  - Intentional product misuse [Unknown]
  - Confusional state [Unknown]
